FAERS Safety Report 9480775 (Version 1)
Quarter: 2013Q3

REPORT INFORMATION
  Report Type: Spontaneous
  Country: US (occurrence: US)
  Receive Date: 20130828
  Receipt Date: 20130828
  Transmission Date: 20140515
  Serious: Yes (Hospitalization, Other)
  Sender: FDA-Public Use
  Company Number: US-AMGEN-KDL116380

PATIENT
  Age: 52 Year
  Sex: Female

DRUGS (2)
  1. ENBREL [Suspect]
     Indication: RHEUMATOID ARTHRITIS
     Dosage: 50 MG, QWK
     Route: 058
     Dates: start: 20020201
  2. AZATHIOPRINE [Concomitant]
     Dosage: 50 MG, UNK
     Dates: start: 20050214

REACTIONS (4)
  - Pneumonia [Unknown]
  - Kidney infection [Unknown]
  - Gastrointestinal infection [Unknown]
  - Injection site pain [Unknown]
